FAERS Safety Report 8225342-3 (Version None)
Quarter: 2012Q1

REPORT INFORMATION
  Report Type: 
  Country: None (occurrence: None)
  Receive Date: 20120321
  Receipt Date: 20120206
  Transmission Date: 20120608
  Serious: Yes (Other)
  Sender: FDA-Public Use
  Company Number: JP-GLAXOSMITHKLINE-B0780749A

PATIENT
  Sex: Female

DRUGS (4)
  1. LAMICTAL [Suspect]
     Dosage: 50MG PER DAY
     Route: 048
     Dates: start: 20120124, end: 20120126
  2. CYMBALTA [Concomitant]
     Dosage: 40MG PER DAY
     Route: 048
     Dates: start: 20111201, end: 20120124
  3. LAMICTAL [Suspect]
     Indication: BIPOLAR DISORDER
     Dosage: 25MG PER DAY
     Route: 048
     Dates: start: 20120117, end: 20120123
  4. CYMBALTA [Concomitant]
     Dosage: 40MG PER DAY
     Route: 048
     Dates: start: 20120130

REACTIONS (9)
  - GENERALISED ERYTHEMA [None]
  - DRUG ERUPTION [None]
  - GAMMA-GLUTAMYLTRANSFERASE INCREASED [None]
  - ASPARTATE AMINOTRANSFERASE INCREASED [None]
  - HEPATIC FUNCTION ABNORMAL [None]
  - DECREASED APPETITE [None]
  - ALANINE AMINOTRANSFERASE INCREASED [None]
  - RASH [None]
  - PYREXIA [None]
